FAERS Safety Report 15494120 (Version 1)
Quarter: 2018Q4

REPORT INFORMATION
  Report Type: Spontaneous
  Country: US (occurrence: US)
  Receive Date: 20181012
  Receipt Date: 20181012
  Transmission Date: 20190205
  Serious: Yes (Death)
  Sender: FDA-Public Use
  Company Number: None

PATIENT
  Age: 64 Year
  Sex: Male

DRUGS (2)
  1. SORAFENIB TOSYLATE. [Suspect]
     Active Substance: SORAFENIB TOSYLATE
     Indication: TRANSPLANT
     Route: 048
     Dates: start: 20170803, end: 20180309
  2. SORAFENIB TOSYLATE. [Suspect]
     Active Substance: SORAFENIB TOSYLATE
     Indication: ACUTE MYELOID LEUKAEMIA
     Route: 048
     Dates: start: 20170803, end: 20180309

REACTIONS (4)
  - Stem cell transplant [None]
  - Lung infiltration [None]
  - Pyrexia [None]
  - Pneumocystis jirovecii pneumonia [None]

NARRATIVE: CASE EVENT DATE: 20180309
